FAERS Safety Report 13630924 (Version 1)
Quarter: 2017Q2

REPORT INFORMATION
  Report Type: Spontaneous
  Country: US (occurrence: US)
  Receive Date: 20170531
  Receipt Date: 20170531
  Transmission Date: 20170830
  Serious: No
  Sender: FDA-Public Use
  Company Number: US-ASTELLAS-1338142

PATIENT
  Age: 56 Year
  Sex: Female
  Weight: 51.3 kg

DRUGS (12)
  1. TARCEVA [Suspect]
     Active Substance: ERLOTINIB HYDROCHLORIDE
     Route: 048
     Dates: start: 20150601
  2. TARCEVA [Suspect]
     Active Substance: ERLOTINIB HYDROCHLORIDE
     Route: 048
     Dates: start: 20150603
  3. ISONIAZID. [Concomitant]
     Active Substance: ISONIAZID
  4. DOXYCYCLINE. [Concomitant]
     Active Substance: DOXYCYCLINE
  5. VITAMIN C [Concomitant]
     Active Substance: ASCORBIC ACID
  6. LEVOTHYROXINE. [Concomitant]
     Active Substance: LEVOTHYROXINE
  7. TARCEVA [Suspect]
     Active Substance: ERLOTINIB HYDROCHLORIDE
     Route: 048
     Dates: start: 20141224
  8. FOLIC ACID. [Concomitant]
     Active Substance: FOLIC ACID
  9. TARCEVA [Suspect]
     Active Substance: ERLOTINIB HYDROCHLORIDE
     Indication: LUNG NEOPLASM MALIGNANT
     Route: 048
     Dates: start: 20131222
  10. VITAMIN B6 [Concomitant]
     Active Substance: PYRIDOXINE HYDROCHLORIDE
  11. CARVEDILOL. [Concomitant]
     Active Substance: CARVEDILOL
  12. SYNTHROID [Concomitant]
     Active Substance: LEVOTHYROXINE SODIUM

REACTIONS (28)
  - Dry skin [Unknown]
  - Skin exfoliation [Unknown]
  - Feeling of body temperature change [Unknown]
  - Joint swelling [Unknown]
  - Diarrhoea [Unknown]
  - Pruritus [Not Recovered/Not Resolved]
  - Acne [Unknown]
  - Nausea [Unknown]
  - Stomatitis [Unknown]
  - Dry mouth [Unknown]
  - Gait disturbance [Unknown]
  - Fatigue [Unknown]
  - Diarrhoea [Not Recovered/Not Resolved]
  - Arthralgia [Unknown]
  - Skin exfoliation [Not Recovered/Not Resolved]
  - Swelling [Unknown]
  - Pain in extremity [Unknown]
  - Feeling cold [Unknown]
  - Pruritus [Unknown]
  - Rash [Not Recovered/Not Resolved]
  - Peripheral swelling [Unknown]
  - Pyrexia [Unknown]
  - Chills [Unknown]
  - Eye irritation [Unknown]
  - Hair growth abnormal [Unknown]
  - Rash [Unknown]
  - Pyrexia [Recovered/Resolved]
  - Myalgia [Unknown]

NARRATIVE: CASE EVENT DATE: 20150105
